FAERS Safety Report 19016237 (Version 1)
Quarter: 2021Q1

REPORT INFORMATION
  Report Type: Spontaneous
  Country: US (occurrence: US)
  Receive Date: 20210317
  Receipt Date: 20210317
  Transmission Date: 20210420
  Serious: No
  Sender: FDA-Public Use
  Company Number: US-GLOBAL BLOOD THERAPEUTICS INC-US-GBT-21-00035

PATIENT
  Age: 58 Year
  Sex: Male

DRUGS (1)
  1. OXBRYTA [Suspect]
     Active Substance: VOXELOTOR
     Indication: SICKLE CELL ANAEMIA WITH CRISIS
     Route: 048
     Dates: start: 20201230

REACTIONS (5)
  - Headache [Unknown]
  - Sickle cell anaemia with crisis [Unknown]
  - Diarrhoea [Unknown]
  - Rash papular [Unknown]
  - Fatigue [Unknown]

NARRATIVE: CASE EVENT DATE: 20201231
